FAERS Safety Report 25157441 (Version 2)
Quarter: 2025Q2

REPORT INFORMATION
  Report Type: Spontaneous
  Country: US (occurrence: US)
  Receive Date: 20250403
  Receipt Date: 20250521
  Transmission Date: 20250717
  Serious: No
  Sender: JOHNSON AND JOHNSON
  Company Number: US-JNJFOC-20250355744

PATIENT
  Age: 69 Year
  Sex: Female

DRUGS (3)
  1. TREMFYA [Suspect]
     Active Substance: GUSELKUMAB
     Indication: Psoriasis
     Route: 058
     Dates: start: 202502
  2. TREMFYA [Suspect]
     Active Substance: GUSELKUMAB
     Route: 058
     Dates: start: 20250313
  3. LABETALOL [Concomitant]
     Active Substance: LABETALOL
     Indication: Blood pressure increased
     Dates: start: 2013

REACTIONS (5)
  - Product dose omission issue [Unknown]
  - Product storage error [Unknown]
  - Pruritus [Unknown]
  - Acne [Unknown]
  - Rosacea [Unknown]

NARRATIVE: CASE EVENT DATE: 20250318
